FAERS Safety Report 14453114 (Version 1)
Quarter: 2018Q1

REPORT INFORMATION
  Report Type: Spontaneous
  Country: PL (occurrence: PL)
  Receive Date: 20180129
  Receipt Date: 20180129
  Transmission Date: 20180509
  Serious: Yes (Hospitalization, Other)
  Sender: FDA-Public Use
  Company Number: PL-WEST-WARD PHARMACEUTICALS CORP.-PL-H14001-18-00626

PATIENT
  Age: 17 Year
  Sex: Male

DRUGS (1)
  1. AMOXICILLIN/CLAVULANIC ACID [Suspect]
     Active Substance: AMOXICILLIN\CLAVULANIC ACID
     Indication: RESPIRATORY TRACT INFECTION BACTERIAL
     Dosage: UNK UNK, UNKNOWN FREQ. ()
     Route: 065

REACTIONS (3)
  - Activated partial thromboplastin time prolonged [Unknown]
  - Prothrombin time prolonged [Unknown]
  - Lung consolidation [Recovered/Resolved]
